FAERS Safety Report 7476261-1 (Version None)
Quarter: 2011Q2

REPORT INFORMATION
  Report Type: 
  Country: None (occurrence: None)
  Receive Date: 20110510
  Receipt Date: 20110510
  Transmission Date: 20111010
  Serious: No
  Sender: FDA-Public Use
  Company Number: None

PATIENT
  Age: 18 Year
  Sex: Female
  Weight: 64.4 kg

DRUGS (1)
  1. REMICADE [Suspect]
     Indication: CROHN'S DISEASE
     Dosage: 300MG Q 8 WEEKS IV
     Route: 042
     Dates: start: 20110101, end: 20110506

REACTIONS (2)
  - DYSPNOEA [None]
  - URTICARIA [None]
